FAERS Safety Report 4557216-3 (Version None)
Quarter: 2005Q1

REPORT INFORMATION
  Report Type: 
  Country: None (occurrence: None)
  Receive Date: 20050118
  Receipt Date: 20050103
  Transmission Date: 20050727
  Serious: Yes (Hospitalization)
  Sender: FDA-Public Use
  Company Number: 2005CG00010

PATIENT
  Age: 81 Year
  Sex: Female

DRUGS (4)
  1. OMEPRAZOLE [Suspect]
     Dosage: 20 MG BID PO
     Route: 048
     Dates: start: 20041206, end: 20041210
  2. PRAVASTATIN [Suspect]
     Dosage: 20 MG QD PO
     Route: 048
     Dates: start: 20041206, end: 20041210
  3. TRAMADOL HCL [Suspect]
     Dates: end: 20041210
  4. FRAXIPARINE/FRA [Suspect]
     Dates: end: 20041210

REACTIONS (4)
  - ACUTE GENERALISED EXANTHEMATOUS PUSTULOSIS [None]
  - C-REACTIVE PROTEIN INCREASED [None]
  - CANDIDIASIS [None]
  - WHITE BLOOD CELL COUNT INCREASED [None]
